FAERS Safety Report 5076593-0 (Version None)
Quarter: 2006Q3

REPORT INFORMATION
  Report Type: 
  Country: None (occurrence: None)
  Receive Date: 20060807
  Receipt Date: 20060725
  Transmission Date: 20061208
  Serious: Yes (Death, Hospitalization)
  Sender: FDA-Public Use
  Company Number: 163-21880-06060687

PATIENT
  Age: 57 Year
  Sex: Male

DRUGS (9)
  1. REVLIMID [Suspect]
     Indication: 5Q-SYNDROME
     Dosage: 10 MG, 1 IN 1 D, ORAL; 10 MG, 3 IN 1 WK, ORAL; 2 IN 1 WK, ORAL
     Route: 048
     Dates: start: 20060501, end: 20060625
  2. REVLIMID [Suspect]
     Indication: 5Q-SYNDROME
     Dosage: 10 MG, 1 IN 1 D, ORAL; 10 MG, 3 IN 1 WK, ORAL; 2 IN 1 WK, ORAL
     Route: 048
     Dates: start: 20060626, end: 20060630
  3. REVLIMID [Suspect]
     Indication: 5Q-SYNDROME
     Dosage: 10 MG, 1 IN 1 D, ORAL; 10 MG, 3 IN 1 WK, ORAL; 2 IN 1 WK, ORAL
     Route: 048
     Dates: start: 20060701, end: 20060706
  4. BACTRIM [Concomitant]
  5. ACYCLOVIR [Concomitant]
  6. PROGRAF [Concomitant]
  7. PREDNISONE TAB [Concomitant]
  8. MAGNESIUM OXIDE (MAGNESIUM OXIDE) [Concomitant]
  9. INDERAL LA [Concomitant]

REACTIONS (4)
  - ASTHENIA [None]
  - CHILLS [None]
  - RESPIRATORY FAILURE [None]
  - THROMBOCYTOPENIA [None]
